FAERS Safety Report 12740124 (Version 2)
Quarter: 2016Q3

REPORT INFORMATION
  Report Type: Spontaneous
  Country: AU (occurrence: AU)
  Receive Date: 20160913
  Receipt Date: 20160920
  Transmission Date: 20161109
  Serious: Yes (Other)
  Sender: FDA-Public Use
  Company Number: AU-GILEAD-2016-0232171

PATIENT
  Sex: Female

DRUGS (1)
  1. HARVONI [Suspect]
     Active Substance: LEDIPASVIR\SOFOSBUVIR
     Indication: CHRONIC HEPATITIS C
     Dosage: UNK
     Route: 065

REACTIONS (10)
  - Cognitive disorder [Unknown]
  - Fall [Unknown]
  - Syncope [Unknown]
  - Peroneal nerve palsy [Unknown]
  - Headache [Unknown]
  - Neuropathy peripheral [Unknown]
  - Malaise [Unknown]
  - Vomiting [Recovered/Resolved]
  - Multiple fractures [Unknown]
  - Rash [Unknown]
